FAERS Safety Report 5510598-8 (Version None)
Quarter: 2007Q4

REPORT INFORMATION
  Report Type: 
  Country: None (occurrence: None)
  Receive Date: 20071107
  Receipt Date: 20071022
  Transmission Date: 20080405
  Serious: Yes (Life-Threatening, Hospitalization)
  Sender: FDA-Public Use
  Company Number: 2007S1008590

PATIENT
  Age: 30 Year
  Sex: Male

DRUGS (3)
  1. AMITRIPTYLINE HYDROCHLORIDE [Suspect]
     Indication: NEURALGIA
     Dosage: 25 MG; DAILY; ORAL, 50 MG; DAILY; ORAL
     Route: 048
     Dates: start: 20070706, end: 20070706
  2. AMITRIPTYLINE HYDROCHLORIDE [Suspect]
     Indication: NEURALGIA
     Dosage: 25 MG; DAILY; ORAL, 50 MG; DAILY; ORAL
     Route: 048
     Dates: start: 20070707, end: 20070707
  3. CYMBALTAN [Concomitant]

REACTIONS (13)
  - CHEST DISCOMFORT [None]
  - CHEST PAIN [None]
  - DIZZINESS [None]
  - DYSPHAGIA [None]
  - DYSPHONIA [None]
  - DYSPNOEA [None]
  - HYPERSENSITIVITY [None]
  - HYPOTENSION [None]
  - PHARYNGEAL OEDEMA [None]
  - PRESYNCOPE [None]
  - STRIDOR [None]
  - URTICARIA [None]
  - WHEEZING [None]
